FAERS Safety Report 5579536-6 (Version None)
Quarter: 2008Q1

REPORT INFORMATION
  Report Type: 
  Country: None (occurrence: None)
  Receive Date: 20080102
  Receipt Date: 20071220
  Transmission Date: 20080703
  Serious: No
  Sender: FDA-Public Use
  Company Number: US-ELI_LILLY_AND_COMPANY-US200712004879

PATIENT
  Age: 28 Year
  Sex: Female

DRUGS (3)
  1. CYMBALTA [Suspect]
     Indication: PERSONALITY DISORDER
     Dosage: 120 MG, UNK
  2. ABILIFY [Concomitant]
     Dosage: 15 MG, UNK
  3. TRAZODONE HCL [Concomitant]
     Dosage: 200 MG, UNK

REACTIONS (2)
  - ABDOMINAL DISCOMFORT [None]
  - LIVER DISORDER [None]
